FAERS Safety Report 5985741-7 (Version None)
Quarter: 2008Q4

REPORT INFORMATION
  Report Type: 
  Country: None (occurrence: None)
  Receive Date: 20081208
  Receipt Date: 20080330
  Transmission Date: 20090506
  Serious: No
  Sender: FDA-Public Use
  Company Number: US-AMGEN-KDL272319

PATIENT
  Sex: Male

DRUGS (2)
  1. ENBREL [Suspect]
     Indication: JUVENILE ARTHRITIS
     Route: 058
     Dates: start: 20080302
  2. METHOTREXATE [Concomitant]
     Route: 058
     Dates: start: 20071001

REACTIONS (2)
  - ACNE [None]
  - NASOPHARYNGITIS [None]
